FAERS Safety Report 6043738-5 (Version None)
Quarter: 2009Q1

REPORT INFORMATION
  Report Type: 
  Country: None (occurrence: None)
  Receive Date: 20090120
  Receipt Date: 20090112
  Transmission Date: 20090719
  Serious: Yes (Other)
  Sender: FDA-Public Use
  Company Number: US-JNJFOC-20090102608

PATIENT
  Age: 95 Year
  Sex: Male
  Weight: 81.65 kg

DRUGS (9)
  1. TYLENOL COLD MULTI-SYMPTOM DAYTIME RAPID RELEASE [Suspect]
     Indication: NASOPHARYNGITIS
     Route: 048
  2. DIGOXIN [Concomitant]
     Indication: CARDIAC FAILURE
  3. FOSAMAX [Concomitant]
     Indication: OSTEOPOROSIS
  4. FUROSEMIDE [Concomitant]
     Indication: DIURETIC THERAPY
  5. LEVOTHYROXINE SODIUM [Concomitant]
     Indication: THYROID DISORDER
  6. TOPROL-XL [Concomitant]
     Indication: CARDIAC FAILURE
  7. POTASSIUM CHLORIDE [Concomitant]
     Indication: MINERAL SUPPLEMENTATION
  8. QUINAPRIL [Concomitant]
     Indication: CARDIAC FAILURE
  9. SLOW-MAG [Concomitant]
     Indication: MINERAL SUPPLEMENTATION

REACTIONS (1)
  - DELUSION [None]
